FAERS Safety Report 8326999-9 (Version None)
Quarter: 2012Q2

REPORT INFORMATION
  Report Type: 
  Country: None (occurrence: None)
  Receive Date: 20120501
  Receipt Date: 20120427
  Transmission Date: 20120825
  Serious: Yes (Other)
  Sender: FDA-Public Use
  Company Number: US-ROCHE-1012076

PATIENT
  Sex: Male
  Weight: 92.616 kg

DRUGS (18)
  1. XOLAIR [Suspect]
     Indication: ASTHMA
     Route: 030
     Dates: start: 20110707
  2. VITAMIN D [Concomitant]
     Dosage: 1 TAB DAY
     Route: 065
  3. LISINOPRIL [Concomitant]
     Route: 065
  4. SERTRALINE HYDROCHLORIDE [Concomitant]
     Dosage: REPORTED AS SERTRALIRE
     Route: 065
  5. WELLBUTRIN [Concomitant]
  6. PROLAIR [Concomitant]
     Dosage: 2 PUFF
     Route: 065
  7. PREDNISONE [Concomitant]
  8. FLUTICASONE FUROATE [Concomitant]
     Route: 065
  9. ZYFLO CR [Concomitant]
     Route: 065
  10. CITRACAL [Concomitant]
     Route: 065
  11. OMEPRAZOLE [Concomitant]
     Route: 065
  12. CLINDAMYCIN [Concomitant]
     Dosage: 1 %
     Route: 065
  13. LEFLUNOMIDE [Concomitant]
     Route: 065
  14. IBUPROFEN [Concomitant]
     Route: 065
  15. BENZOYL PEROXIDE [Concomitant]
     Dosage: 10%
     Route: 065
  16. ALBUTEROL [Concomitant]
     Route: 065
  17. ASPIRIN [Concomitant]
     Route: 065
  18. ALENDRONATE SODIUM [Concomitant]
     Route: 065

REACTIONS (2)
  - ARTHRITIS [None]
  - PARAESTHESIA [None]
